FAERS Safety Report 8585806-X (Version None)
Quarter: 2012Q3

REPORT INFORMATION
  Report Type: 
  Country: None (occurrence: None)
  Receive Date: 20120810
  Receipt Date: 20120801
  Transmission Date: 20120928
  Serious: Yes (Hospitalization)
  Sender: FDA-Public Use
  Company Number: US-ELI_LILLY_AND_COMPANY-US201205001547

PATIENT
  Sex: Female

DRUGS (17)
  1. ASPIRIN [Concomitant]
     Dosage: UNK UNK, QD
  2. MULTI-VITAMIN [Concomitant]
     Dosage: UNK, QD
  3. LEVOTHYROXINE SODIUM [Concomitant]
     Dosage: 0.25 MG, QD
  4. ROSUVASTATIN [Concomitant]
     Indication: BLOOD CHOLESTEROL
     Dosage: 10 MG, EACH EVENING
  5. FORTEO [Suspect]
     Dosage: 20 UG, QD
     Dates: end: 20120409
  6. FORTEO [Suspect]
     Indication: OSTEOPOROSIS
     Dosage: 20 UG, QD
  7. LORTAB [Concomitant]
     Dosage: 10 MG, PRN
  8. OMEPRAZOLE [Concomitant]
     Dosage: 20 MG, BID
  9. VITAMIN D [Concomitant]
     Dosage: 5000 U, QD
  10. AMLODIPINE [Concomitant]
     Dosage: 5 MG, QD
  11. MUSCLE RELAXANTS [Concomitant]
  12. ELAVIL [Concomitant]
     Dosage: UNK UNK, PRN
  13. LOSARTAN POTASSIUM [Concomitant]
     Dosage: 50 MG, QD
  14. FORTEO [Suspect]
     Dosage: 20 UG, QD
  15. IBUPROFEN [Concomitant]
     Dosage: 600 MG, PRN
  16. SERTRALINE HYDROCHLORIDE [Concomitant]
     Dosage: 100 MG, QD
  17. CALCIUM [Concomitant]
     Dosage: 600 MG, BID

REACTIONS (3)
  - MEDICAL DEVICE IMPLANTATION [None]
  - PAIN [None]
  - IRRITABILITY [None]
